FAERS Safety Report 5544853-2 (Version None)
Quarter: 2007Q4

REPORT INFORMATION
  Report Type: 
  Country: None (occurrence: None)
  Receive Date: 20071210
  Receipt Date: 20070115
  Transmission Date: 20080405
  Serious: No
  Sender: FDA-Public Use
  Company Number: US-AMGEN-KDL206960

PATIENT
  Sex: Male

DRUGS (2)
  1. ENBREL [Suspect]
     Indication: PSORIATIC ARTHROPATHY
     Route: 058
     Dates: start: 20061028, end: 20061216
  2. ARAVA [Concomitant]
     Dates: start: 20040101

REACTIONS (3)
  - ARTHRALGIA [None]
  - NECK PAIN [None]
  - ULCER [None]
